FAERS Safety Report 5276252-5 (Version None)
Quarter: 2007Q1

REPORT INFORMATION
  Report Type: 
  Country: None (occurrence: None)
  Receive Date: 20070326
  Receipt Date: 20070315
  Transmission Date: 20070707
  Serious: Yes (Other)
  Sender: FDA-Public Use
  Company Number: JP-PFIZER INC-2007019223

PATIENT
  Age: 39 Year
  Sex: Male

DRUGS (7)
  1. SOLU-MEDROL [Suspect]
     Indication: SPINAL CORD INJURY
     Dosage: DAILY DOSE:1750MG
     Route: 042
  2. TETANUS TOXOID, ADSORBED [Suspect]
  3. XYLOCAINE [Suspect]
  4. LIDOCAINE AND EPINEPHRINE [Suspect]
  5. CEFAZOLIN SODIUM [Suspect]
  6. ALL OTHER THERAPEUTIC PRODUCTS [Concomitant]
  7. ANTIBIOTICS [Concomitant]

REACTIONS (1)
  - SHOCK [None]
